FAERS Safety Report 7438260-5 (Version None)
Quarter: 2011Q2

REPORT INFORMATION
  Report Type: 
  Country: None (occurrence: None)
  Receive Date: 20110421
  Receipt Date: 20110421
  Transmission Date: 20111010
  Serious: Yes (Other)
  Sender: FDA-Public Use
  Company Number: None

PATIENT
  Age: 54 Year
  Sex: Female
  Weight: 63.5036 kg

DRUGS (2)
  1. ZOVIRAX [Suspect]
     Indication: ORAL HERPES
     Dosage: PUT CREAM ON AFECTED AREA 4 TIMES A DAY
     Dates: start: 20110414, end: 20110416
  2. ZOVIRAX [Suspect]
     Indication: BLISTER
     Dosage: PUT CREAM ON AFECTED AREA 4 TIMES A DAY
     Dates: start: 20110414, end: 20110416

REACTIONS (6)
  - SKIN IRRITATION [None]
  - ERYTHEMA [None]
  - PRURITUS [None]
  - SKIN EXFOLIATION [None]
  - FEELING ABNORMAL [None]
  - APPLICATION SITE REACTION [None]
